FAERS Safety Report 12692792 (Version 1)
Quarter: 2016Q3

REPORT INFORMATION
  Report Type: Spontaneous
  Country: US (occurrence: None)
  Receive Date: 20160826
  Receipt Date: 20160826
  Transmission Date: 20161109
  Serious: No
  Sender: FDA-Public Use
  Company Number: None

PATIENT

DRUGS (1)
  1. HYDROCO/APAP TAB 5-325MG [Suspect]
     Active Substance: ACETAMINOPHEN\HYDROCODONE

REACTIONS (2)
  - Drug prescribing error [None]
  - Transcription medication error [None]
